FAERS Safety Report 8827380 (Version 1)
Quarter: 2012Q4

REPORT INFORMATION
  Report Type: 
  Country: DK (occurrence: FR)
  Receive Date: 20121005
  Receipt Date: 20121005
  Transmission Date: 20130627
  Serious: Yes (Hospitalization)
  Sender: FDA-Public Use
  Company Number: FR-FRI-1000039228

PATIENT
  Age: 78 Year
  Sex: Female

DRUGS (5)
  1. CITALOPRAM [Suspect]
     Indication: DEPRESSION
     Dosage: 20 mg
     Route: 048
     Dates: start: 20111123, end: 20120713
  2. SERESTA [Concomitant]
     Indication: DEPRESSION
     Dosage: 10 mg
  3. ZANIDIP [Concomitant]
     Indication: HYPERTENSION
     Dosage: 20 mg
  4. DIAMICRON [Concomitant]
     Indication: TYPE 2 DIABETES MELLITUS
     Dosage: 60 mg
  5. VELMETIA [Concomitant]
     Indication: TYPE 2 DIABETES MELLITUS
     Dosage: 50/1000 mg

REACTIONS (5)
  - Convulsion [Recovered/Resolved]
  - Inappropriate antidiuretic hormone secretion [Recovered/Resolved]
  - Hyponatraemia [Recovered/Resolved with Sequelae]
  - Fall [Recovered/Resolved]
  - Confusional state [Recovered/Resolved]
